FAERS Safety Report 25352596 (Version 1)
Quarter: 2025Q2

REPORT INFORMATION
  Report Type: Spontaneous
  Country: US (occurrence: None)
  Receive Date: 20250522
  Receipt Date: 20250522
  Transmission Date: 20250717
  Serious: Yes (Life-Threatening)
  Sender: FDA-CTU
  Company Number: None

PATIENT
  Age: 35 Year
  Sex: Male
  Weight: 59 kg

DRUGS (1)
  1. CEFTRIAXONE [Suspect]
     Active Substance: CEFTRIAXONE
     Indication: Urinary tract infection
     Route: 042
     Dates: start: 20250520, end: 20250520

REACTIONS (4)
  - Unresponsive to stimuli [None]
  - Agonal respiration [None]
  - Blood pressure decreased [None]
  - Tachycardia [None]

NARRATIVE: CASE EVENT DATE: 20250520
